FAERS Safety Report 10582069 (Version 1)
Quarter: 2014Q4

REPORT INFORMATION
  Report Type: Spontaneous
  Country: DE (occurrence: DE)
  Receive Date: 20141113
  Receipt Date: 20141113
  Transmission Date: 20150529
  Serious: Yes (Hospitalization, Other)
  Sender: FDA-Public Use
  Company Number: DE-ROCHE-1490477

PATIENT
  Sex: Female

DRUGS (11)
  1. AVASTIN [Suspect]
     Active Substance: BEVACIZUMAB
     Indication: MACULAR DEGENERATION
     Route: 050
     Dates: start: 201111
  2. AVASTIN [Suspect]
     Active Substance: BEVACIZUMAB
     Route: 050
     Dates: start: 201211
  3. CLOPIDOGREL [Concomitant]
     Active Substance: CLOPIDOGREL BISULFATE
     Route: 048
     Dates: start: 2014
  4. SIMVASTATIN. [Concomitant]
     Active Substance: SIMVASTATIN
     Route: 048
  5. AVASTIN [Suspect]
     Active Substance: BEVACIZUMAB
     Route: 050
     Dates: start: 201302
  6. EYLEA [Suspect]
     Active Substance: AFLIBERCEPT
     Indication: HYPERTENSION
     Route: 065
  7. METOHEXAL SUCC [Concomitant]
     Active Substance: METOPROLOL SUCCINATE
     Route: 048
  8. ACETYLSALICYLIC ACID [Concomitant]
     Active Substance: ASPIRIN
     Route: 048
  9. LUCENTIS [Suspect]
     Active Substance: RANIBIZUMAB
     Indication: MACULAR DEGENERATION
     Dosage: REGIMEN 2: START 13/MAY/2014
     Route: 050
  10. PANTOPRAZOLE SODIUM SESQUIHYDRATE [Concomitant]
     Active Substance: PANTOPRAZOLE SODIUM
     Route: 048
  11. TRIAMTERENE. [Concomitant]
     Active Substance: TRIAMTERENE
     Dosage: 50/25 UKN
     Route: 048

REACTIONS (28)
  - Pulmonary hypertension [Unknown]
  - Dry age-related macular degeneration [Unknown]
  - Tricuspid valve disease [Unknown]
  - Periarthritis [Unknown]
  - Mobility decreased [Unknown]
  - Blood lactate dehydrogenase increased [Unknown]
  - Hypertensive crisis [Unknown]
  - Arteriosclerosis [Unknown]
  - Aortic valve incompetence [Unknown]
  - Paget-Schroetter syndrome [Unknown]
  - Oedema peripheral [Unknown]
  - Coronary artery disease [Unknown]
  - Osteoarthritis [Unknown]
  - Cervicobrachial syndrome [Unknown]
  - Carpal tunnel syndrome [Unknown]
  - Presbyopia [Unknown]
  - Angina unstable [Unknown]
  - Macular degeneration [Unknown]
  - Lymphoedema [Unknown]
  - Fibrin D dimer increased [Unknown]
  - Arrhythmia [Unknown]
  - Osteochondrosis [Unknown]
  - Hepatic cyst [Unknown]
  - Herpes zoster [Unknown]
  - Lipoma [Unknown]
  - Peripheral venous disease [Unknown]
  - Hypertensive heart disease [Unknown]
  - Blood pressure increased [Unknown]
